FAERS Safety Report 13263782 (Version 1)
Quarter: 2017Q1

REPORT INFORMATION
  Report Type: Spontaneous
  Country: US (occurrence: US)
  Receive Date: 20170222
  Receipt Date: 20170222
  Transmission Date: 20170428
  Serious: No
  Sender: FDA-Public Use
  Company Number: None

PATIENT
  Age: 58 Year
  Sex: Female
  Weight: 67.5 kg

DRUGS (5)
  1. CELEBREX [Concomitant]
     Active Substance: CELECOXIB
  2. MIRVASO [Suspect]
     Active Substance: BRIMONIDINE TARTRATE
     Indication: ROSACEA
     Dosage: ?          QUANTITY:1 PEA-SIDE AMOUNT;?
     Route: 061
     Dates: start: 20170123, end: 20170201
  3. MULTIVITAMIN [Concomitant]
     Active Substance: VITAMINS
  4. SYNTHROID [Concomitant]
     Active Substance: LEVOTHYROXINE SODIUM
  5. CYMBALTA [Concomitant]
     Active Substance: DULOXETINE HYDROCHLORIDE

REACTIONS (8)
  - Condition aggravated [None]
  - Oral discomfort [None]
  - Pulmonary congestion [None]
  - Headache [None]
  - Erythema [None]
  - Flushing [None]
  - Malaise [None]
  - Eye irritation [None]

NARRATIVE: CASE EVENT DATE: 20170126
